FAERS Safety Report 16975786 (Version 2)
Quarter: 2019Q4

REPORT INFORMATION
  Report Type: Spontaneous
  Country: US (occurrence: US)
  Receive Date: 20191030
  Receipt Date: 20191227
  Transmission Date: 20200122
  Serious: No
  Sender: FDA-Public Use
  Company Number: US-PFIZER INC-2019470407

PATIENT
  Age: 63 Year
  Sex: Male

DRUGS (1)
  1. LYRICA [Suspect]
     Active Substance: PREGABALIN
     Indication: ORAL PAIN
     Dosage: 50 MG, 2X/DAY (TAKE 1 CAPSULE (50 MG) BY MOUTH EVERY 12 (TWELVE) HOURS)
     Route: 048

REACTIONS (4)
  - Product use in unapproved indication [Unknown]
  - Insomnia [Unknown]
  - Off label use [Unknown]
  - Pain [Unknown]
